FAERS Safety Report 16556549 (Version 2)
Quarter: 2019Q3

REPORT INFORMATION
  Report Type: Report from Study
  Country: US (occurrence: US)
  Receive Date: 20190711
  Receipt Date: 20190808
  Transmission Date: 20191004
  Serious: Yes (Hospitalization, Other)
  Sender: FDA-Public Use
  Company Number: US-MALLINCKRODT-T201904894

PATIENT
  Age: 0 Year
  Sex: Female
  Weight: 8 kg

DRUGS (4)
  1. REPOSITORY CORTICOTROPIN INJECTION [Suspect]
     Active Substance: CORTICOTROPIN
     Dosage: 0.35 ML, EVERY DAY (Q AM) X 7 DAYS
     Route: 030
     Dates: start: 20190702, end: 20190718
  2. REPOSITORY CORTICOTROPIN INJECTION [Suspect]
     Active Substance: CORTICOTROPIN
     Indication: INFANTILE SPASMS
     Dosage: 0.35 ML, TWICE A DAY (BID) X 2 WEEKS
     Route: 030
     Dates: start: 20190619, end: 20190701
  3. POLY-VI-SOL WITH IRON [Concomitant]
     Active Substance: IRON\VITAMINS
     Indication: PRODUCT USED FOR UNKNOWN INDICATION
  4. PREVACID [Concomitant]
     Active Substance: LANSOPRAZOLE
     Indication: GASTRIC ULCER
     Dosage: UNK
     Route: 065
     Dates: start: 2019, end: 20190718

REACTIONS (5)
  - Haematemesis [Unknown]
  - Irritability [Unknown]
  - Gastric ulcer [Recovered/Resolved]
  - Nausea [Unknown]
  - Myoclonic epilepsy [Unknown]

NARRATIVE: CASE EVENT DATE: 2019
